FAERS Safety Report 8977380 (Version 1)
Quarter: 2012Q4

REPORT INFORMATION
  Report Type: 
  Country: US (occurrence: US)
  Receive Date: 20121219
  Receipt Date: 20121219
  Transmission Date: 20130627
  Serious: Yes (Other)
  Sender: FDA-Public Use
  Company Number: US-ROCHE-1143687

PATIENT
  Sex: Male
  Weight: 92.16 kg

DRUGS (1)
  1. ACCUTANE [Suspect]
     Indication: PRODUCT USED FOR UNKNOWN INDICATION
     Route: 065
     Dates: start: 19961218, end: 19970510

REACTIONS (5)
  - Colitis ulcerative [Unknown]
  - Crohn^s disease [Unknown]
  - Irritable bowel syndrome [Unknown]
  - Inflammatory bowel disease [Unknown]
  - Depression [Unknown]
